FAERS Safety Report 5357577-1 (Version None)
Quarter: 2007Q2

REPORT INFORMATION
  Report Type: 
  Country: None (occurrence: None)
  Receive Date: 20070614
  Receipt Date: 20070605
  Transmission Date: 20071010
  Serious: Yes (Other)
  Sender: FDA-Public Use
  Company Number: US-ELI_LILLY_AND_COMPANY-US200706000941

PATIENT
  Age: 48 Year
  Sex: Male

DRUGS (2)
  1. HUMALOG [Suspect]
     Dates: start: 20060801
  2. LANTUS [Concomitant]
     Indication: DIABETES MELLITUS
     Dosage: 1 UNK, EACH EVENING
     Dates: start: 20060801

REACTIONS (7)
  - BLOOD GLUCOSE DECREASED [None]
  - CHEST DISCOMFORT [None]
  - CHILLS [None]
  - NAUSEA [None]
  - RASH [None]
  - VISUAL ACUITY REDUCED [None]
  - VITRECTOMY [None]
